FAERS Safety Report 7446999-0 (Version None)
Quarter: 2011Q2

REPORT INFORMATION
  Report Type: 
  Country: None (occurrence: None)
  Receive Date: 20110429
  Receipt Date: 20110420
  Transmission Date: 20111010
  Serious: Yes (Other)
  Sender: FDA-Public Use
  Company Number: US-US-EMD SERONO, INC.-7055354

PATIENT
  Sex: Male

DRUGS (1)
  1. REBIF [Suspect]
     Indication: PRODUCT USED FOR UNKNOWN INDICATION
     Route: 058
     Dates: start: 20110102

REACTIONS (6)
  - FATIGUE [None]
  - DEPRESSED MOOD [None]
  - NERVOUSNESS [None]
  - TREMOR [None]
  - SELF-INJURIOUS IDEATION [None]
  - PAIN [None]
